FAERS Safety Report 26101817 (Version 1)
Quarter: 2025Q4

REPORT INFORMATION
  Report Type: Spontaneous
  Country: US (occurrence: US)
  Receive Date: 20251128
  Receipt Date: 20251128
  Transmission Date: 20260117
  Serious: Yes (Death)
  Sender: MALLINCKRODT
  Company Number: US-MALLINCKRODT-MNK202507165

PATIENT
  Age: 56 Year
  Sex: Male

DRUGS (2)
  1. CORTICOTROPIN [Suspect]
     Active Substance: CORTICOTROPIN
     Indication: Glomerulonephritis
     Dosage: 80 UNITS
     Route: 058
     Dates: start: 202508
  2. CORTICOTROPIN [Suspect]
     Active Substance: CORTICOTROPIN
     Indication: Glomerulonephritis

REACTIONS (1)
  - Renal failure [Fatal]

NARRATIVE: CASE EVENT DATE: 20251107
